FAERS Safety Report 10626625 (Version 1)
Quarter: 2014Q4

REPORT INFORMATION
  Report Type: Spontaneous
  Country: US (occurrence: US)
  Receive Date: 20141204
  Receipt Date: 20141204
  Transmission Date: 20150529
  Serious: No
  Sender: FDA-Public Use
  Company Number: US-ELI_LILLY_AND_COMPANY-US201411006398

PATIENT
  Age: 11 Year
  Sex: Male

DRUGS (1)
  1. FORTEO [Suspect]
     Active Substance: TERIPARATIDE
     Indication: SEIZURE
     Dosage: UNK UNK, BID
     Route: 065
     Dates: start: 2012

REACTIONS (3)
  - Off label use [Unknown]
  - Overdose [Unknown]
  - Incorrect drug administration duration [Unknown]
